FAERS Safety Report 9960692 (Version 2)
Quarter: 2014Q2

REPORT INFORMATION
  Report Type: Spontaneous
  Country: US (occurrence: US)
  Receive Date: 20140305
  Receipt Date: 20140414
  Transmission Date: 20141212
  Serious: No
  Sender: FDA-Public Use
  Company Number: US-JNJFOC-20140214162

PATIENT
  Sex: Female
  Weight: 58.97 kg

DRUGS (19)
  1. SANDOZ FENTANYL TRANSDERMAL SYSTEM [Suspect]
     Indication: ARTHRALGIA
     Route: 062
     Dates: start: 201304
  2. SANDOZ FENTANYL TRANSDERMAL SYSTEM [Suspect]
     Indication: ARTHRALGIA
     Route: 062
     Dates: start: 2014
  3. ATENOLOL [Concomitant]
     Indication: HYPERTENSION
     Route: 048
  4. DETROL [Concomitant]
     Indication: BLADDER DISORDER
     Route: 048
  5. ERGOCALCIFEROL [Concomitant]
     Route: 065
  6. FLUTICASONE [Concomitant]
     Dosage: 50 UG
     Route: 045
  7. GABAPENTIN [Concomitant]
     Route: 048
  8. VITAMIN B COMPLEX [Concomitant]
     Route: 048
  9. OCUVITE (VITAMIN COMBINATIONS) [Concomitant]
     Route: 048
  10. OXYCODONE [Concomitant]
     Indication: PAIN
     Route: 048
  11. PANTOPRAZOLE [Concomitant]
     Route: 048
  12. SIMVASTATIN [Concomitant]
     Route: 048
  13. DETROL LA [Concomitant]
     Route: 048
  14. RECLAST [Concomitant]
     Route: 042
  15. AMOXICILLIN [Concomitant]
     Dosage: 4 CAPSULES 30 TO 60 MINUTES BEFORE PROCEDURE AS DIRECTED
     Route: 048
  16. VITAMIN C [Concomitant]
     Route: 048
  17. ASPIRIN [Concomitant]
     Route: 048
  18. CALCIUM 600+D [Concomitant]
     Route: 065
  19. PLETAL [Concomitant]
     Route: 048

REACTIONS (3)
  - Application site erythema [Not Recovered/Not Resolved]
  - Wrong technique in drug usage process [Unknown]
  - Application site pruritus [Not Recovered/Not Resolved]
